FAERS Safety Report 15839039 (Version 2)
Quarter: 2019Q1

REPORT INFORMATION
  Report Type: Spontaneous
  Country: KR (occurrence: KR)
  Receive Date: 20190117
  Receipt Date: 20190128
  Transmission Date: 20190417
  Serious: Yes (Hospitalization)
  Sender: FDA-Public Use
  Company Number: KR-009507513-1901KOR004307

PATIENT
  Sex: Female

DRUGS (4)
  1. KEYTRUDA [Suspect]
     Active Substance: PEMBROLIZUMAB
     Indication: CERVIX CARCINOMA
     Dosage: 2 DOSAGE FORM (ALSO REPORTED AS QUANTITY: 2, DAY: 1)
     Dates: start: 20181027
  2. KEYTRUDA [Suspect]
     Active Substance: PEMBROLIZUMAB
     Dosage: 2 DOSAGE FORM (ALSO REPORTED AS QUANTITY: 2, DAY: 1)
     Dates: start: 20181209
  3. KEYTRUDA [Suspect]
     Active Substance: PEMBROLIZUMAB
     Dosage: 2 DOSAGE FORM (ALSO REPORTED AS QUANTITY: 2, DAY: 1)
     Dates: start: 20190107
  4. KEYTRUDA [Suspect]
     Active Substance: PEMBROLIZUMAB
     Dosage: 2 DOSAGE FORM (ALSO REPORTED AS QUANTITY: 2, DAY: 1)
     Dates: start: 20181118

REACTIONS (2)
  - Product use in unapproved indication [Unknown]
  - Adverse event [Unknown]

NARRATIVE: CASE EVENT DATE: 201810
